FAERS Safety Report 7351806-0 (Version None)
Quarter: 2011Q1

REPORT INFORMATION
  Report Type: 
  Country: None (occurrence: None)
  Receive Date: 20110315
  Receipt Date: 20110303
  Transmission Date: 20110831
  Serious: Yes (Other)
  Sender: FDA-Public Use
  Company Number: GB-JNJFOC-20110302698

PATIENT
  Sex: Female

DRUGS (5)
  1. INFLIXIMAB, RECOMBINANT [Suspect]
     Indication: CROHN'S DISEASE
     Route: 042
  2. PIRITON [Concomitant]
     Indication: PREMEDICATION
     Route: 042
  3. INFLIXIMAB, RECOMBINANT [Suspect]
     Route: 042
  4. HYDROCORTISONE [Concomitant]
     Indication: PREMEDICATION
     Route: 065
  5. INFLIXIMAB, RECOMBINANT [Suspect]
     Route: 042

REACTIONS (5)
  - DYSPNOEA [None]
  - INFUSION RELATED REACTION [None]
  - SKIN DISCOLOURATION [None]
  - MALAISE [None]
  - VIRAL INFECTION [None]
